FAERS Safety Report 8615401-5 (Version None)
Quarter: 2012Q3

REPORT INFORMATION
  Report Type: 
  Country: None (occurrence: None)
  Receive Date: 20120823
  Receipt Date: 20120814
  Transmission Date: 20120928
  Serious: Yes (Other)
  Sender: FDA-Public Use
  Company Number: CA-JNJFOC-20120806887

PATIENT
  Sex: Female
  Weight: 89.3 kg

DRUGS (4)
  1. REMICADE [Suspect]
     Dosage: 5TH INFUSION
     Route: 042
     Dates: start: 20120618
  2. REMICADE [Suspect]
     Indication: COLITIS ULCERATIVE
     Route: 042
     Dates: start: 20120113
  3. IMURAN [Concomitant]
     Dosage: 4 TABLETS
     Route: 048
  4. ALL OTHER THERAPEUTICS [Concomitant]
     Route: 065

REACTIONS (3)
  - ARRHYTHMIA [None]
  - RASH [None]
  - SYNCOPE [None]
